FAERS Safety Report 16277462 (Version 2)
Quarter: 2019Q2

REPORT INFORMATION
  Report Type: Spontaneous
  Country: AR (occurrence: AR)
  Receive Date: 20190506
  Receipt Date: 20190603
  Transmission Date: 20190711
  Serious: Yes (Hospitalization)
  Sender: FDA-Public Use
  Company Number: PHHY2019AR102592

PATIENT
  Sex: Male

DRUGS (1)
  1. REVOLADE [Suspect]
     Active Substance: ELTROMBOPAG
     Indication: THROMBOCYTOPENIC PURPURA
     Dosage: 25-50 MG, QD
     Route: 065
     Dates: start: 201801

REACTIONS (2)
  - Pancreatitis [Unknown]
  - Lithiasis [Unknown]
